FAERS Safety Report 9240009 (Version 2)
Quarter: 2013Q4

REPORT INFORMATION
  Report Type: Spontaneous
  Country: CH (occurrence: CH)
  Receive Date: 20130418
  Receipt Date: 20131107
  Transmission Date: 20140711
  Serious: Yes (Hospitalization)
  Sender: FDA-Public Use
  Company Number: CH-GLAXOSMITHKLINE-B0884681A

PATIENT
  Age: 21 Year
  Sex: Female
  Weight: 54 kg

DRUGS (5)
  1. TROBALT [Suspect]
     Indication: EPILEPSY
     Dosage: 200MG THREE TIMES PER DAY
     Route: 048
     Dates: start: 201202, end: 20120730
  2. SERTRALINE HYDROCHLORIDE [Suspect]
     Indication: PRODUCT USED FOR UNKNOWN INDICATION
     Dosage: 50MG PER DAY
     Route: 048
     Dates: start: 2011, end: 20120802
  3. LYRICA [Concomitant]
     Dosage: 600MG PER DAY
     Route: 048
     Dates: start: 2011
  4. CLOBAZAM [Concomitant]
     Dosage: 15MG PER DAY
     Route: 048
     Dates: start: 2011
  5. LAMICTAL [Concomitant]
     Indication: EPILEPSY
     Dosage: 500MG PER DAY
     Route: 048

REACTIONS (1)
  - Hepatocellular injury [Recovered/Resolved]
